FAERS Safety Report 8184734-1 (Version None)
Quarter: 2012Q1

REPORT INFORMATION
  Report Type: 
  Country: None (occurrence: None)
  Receive Date: 20120305
  Receipt Date: 20120305
  Transmission Date: 20120608
  Serious: Yes (Hospitalization)
  Sender: FDA-Public Use
  Company Number: None

PATIENT
  Age: 63 Year
  Sex: Male

DRUGS (2)
  1. GENTAMICIN [Suspect]
     Indication: DIABETIC FOOT
     Dosage: 130MG
     Route: 042
     Dates: start: 20111120, end: 20111122
  2. VANCOMYCIN [Concomitant]
     Indication: DIABETIC FOOT
     Dosage: 750MG
     Route: 042
     Dates: start: 20111120, end: 20111122

REACTIONS (3)
  - NEPHROPATHY TOXIC [None]
  - HAEMODIALYSIS [None]
  - RENAL FAILURE [None]
